FAERS Safety Report 9558752 (Version 2)
Quarter: 2014Q3

REPORT INFORMATION
  Report Type: Spontaneous
  Country: US (occurrence: US)
  Receive Date: 20130926
  Receipt Date: 20140815
  Transmission Date: 20150326
  Serious: No
  Sender: FDA-Public Use
  Company Number: US-BIOGENIDEC-2013BI046702

PATIENT
  Age: 70 Year
  Sex: Male

DRUGS (12)
  1. OXYTROL [Concomitant]
     Active Substance: OXYBUTYNIN
  2. MAGNESIUM [Concomitant]
     Active Substance: MAGNESIUM
  3. CIALIS [Concomitant]
     Active Substance: TADALAFIL
  4. BRIMONIDINE TARTRATE. [Concomitant]
     Active Substance: BRIMONIDINE TARTRATE
  5. TECFIDERA [Suspect]
     Active Substance: DIMETHYL FUMARATE
     Indication: MULTIPLE SCLEROSIS
     Route: 048
     Dates: start: 20130507
  6. VITAMIN D [Concomitant]
     Active Substance: CHOLECALCIFEROL
  7. ACTONEL [Concomitant]
     Active Substance: RISEDRONATE SODIUM
  8. MAGNESIUM [Concomitant]
     Active Substance: MAGNESIUM
  9. XALATAN [Concomitant]
     Active Substance: LATANOPROST
  10. ASPIRIN ADULT LOW STRENGTH [Concomitant]
     Active Substance: ASPIRIN
  11. CENTRUM [Concomitant]
     Active Substance: VITAMINS
  12. CALCIUM CITRATE [Concomitant]
     Active Substance: CALCIUM CITRATE

REACTIONS (3)
  - Nausea [Unknown]
  - Flushing [Unknown]
  - Vertigo [Unknown]
